FAERS Safety Report 4461857-1 (Version None)
Quarter: 2004Q3

REPORT INFORMATION
  Report Type: 
  Country: None (occurrence: None)
  Receive Date: 20040929
  Receipt Date: 20031104
  Transmission Date: 20050211
  Serious: No
  Sender: FDA-Public Use
  Company Number: US-GLAXOSMITHKLINE-A0432861A

PATIENT
  Age: 72 Year
  Sex: Female

DRUGS (7)
  1. SEREVENT [Suspect]
     Indication: ASTHMA
     Dosage: 1PUFF TWICE PER DAY
     Route: 055
     Dates: start: 20030801, end: 20030801
  2. PREDNISONE [Concomitant]
  3. THYROID TAB [Concomitant]
  4. FOSAMAX [Concomitant]
  5. ALBUTEROL [Concomitant]
  6. POTASSIUM [Concomitant]
  7. SINGULAIR [Concomitant]
     Route: 048

REACTIONS (1)
  - NAUSEA [None]
